FAERS Safety Report 9504086 (Version 1)
Quarter: 2013Q3

REPORT INFORMATION
  Report Type: Spontaneous
  Country: GB (occurrence: GB)
  Receive Date: 20130906
  Receipt Date: 20130906
  Transmission Date: 20140515
  Serious: Yes (Hospitalization)
  Sender: FDA-Public Use
  Company Number: GB-TEVA-429723ISR

PATIENT
  Sex: Male

DRUGS (2)
  1. PREDNISOLONE [Suspect]
     Indication: PRODUCT USED FOR UNKNOWN INDICATION
     Dosage: NOT STATED
     Route: 065
  2. DIGOXIN ACTAVIS [Suspect]
     Indication: PRODUCT USED FOR UNKNOWN INDICATION
     Dosage: 6 TABLETS IN TOTAL
     Route: 065

REACTIONS (4)
  - Dyspnoea [Unknown]
  - Heart rate decreased [Unknown]
  - Drug dispensing error [Unknown]
  - Medication error [Unknown]
